FAERS Safety Report 10854859 (Version 1)
Quarter: 2015Q1

REPORT INFORMATION
  Report Type: Spontaneous
  Country: MX (occurrence: None)
  Receive Date: 20150218
  Receipt Date: 20150218
  Transmission Date: 20150721
  Serious: Yes (Other)
  Sender: FDA-Public Use
  Company Number: MX-ZYDUS-006529

PATIENT
  Age: 15 Year
  Sex: Female

DRUGS (3)
  1. PREDNISONE (PREDNISONE) [Suspect]
     Active Substance: PREDNISONE
     Indication: IMMUNOSUPPRESSANT DRUG THERAPY
  2. BCG [Suspect]
     Active Substance: BCG VACCINE
  3. AZATHIOPRINE (AZATHIOPRINE) [Suspect]
     Active Substance: AZATHIOPRINE
     Indication: IMMUNOSUPPRESSANT DRUG THERAPY

REACTIONS (6)
  - Mycobacterial infection [None]
  - Granuloma [None]
  - Lymphadenitis [None]
  - Cerebral haemorrhage [None]
  - Tuberculosis of central nervous system [None]
  - Systemic lupus erythematosus [None]
